FAERS Safety Report 8135100-6 (Version None)
Quarter: 2012Q1

REPORT INFORMATION
  Report Type: 
  Country: None (occurrence: None)
  Receive Date: 20120214
  Receipt Date: 20120206
  Transmission Date: 20120608
  Serious: Yes (Hospitalization)
  Sender: FDA-Public Use
  Company Number: US-BAYER-2011-105766

PATIENT
  Age: 27 Year
  Sex: Female
  Weight: 86 kg

DRUGS (1)
  1. YAZ [Suspect]
     Dosage: UNK
     Dates: start: 20080201, end: 20090101

REACTIONS (7)
  - APHAGIA [None]
  - GALLBLADDER INJURY [None]
  - MALAISE [None]
  - PAIN [None]
  - INJURY [None]
  - FATIGUE [None]
  - FEAR [None]
